FAERS Safety Report 8509162-8 (Version None)
Quarter: 2012Q3

REPORT INFORMATION
  Report Type: 
  Country: None (occurrence: None)
  Receive Date: 20120713
  Receipt Date: 20120706
  Transmission Date: 20120928
  Serious: Yes (Hospitalization)
  Sender: FDA-Public Use
  Company Number: JP-GLAXOSMITHKLINE-B0814188A

PATIENT
  Age: 76 Year
  Sex: Female

DRUGS (5)
  1. VALTREX [Suspect]
     Indication: HERPES ZOSTER
     Dosage: 3000MG PER DAY
     Route: 048
     Dates: start: 20120615, end: 20120619
  2. VITAMIN B12 [Concomitant]
     Indication: NEUROPATHY PERIPHERAL
     Dosage: 1500MCG PER DAY
     Route: 065
  3. ACETAMINOPHEN [Concomitant]
     Dosage: 1200MG PER DAY
     Route: 065
  4. ADALAT [Concomitant]
     Dosage: 20MG PER DAY
     Route: 048
  5. CANDESARTAN CILEXETIL [Concomitant]
     Indication: HYPERTENSION
     Dosage: 4MG PER DAY
     Route: 048

REACTIONS (5)
  - RENAL DISORDER [None]
  - LABORATORY TEST ABNORMAL [None]
  - POST HERPETIC NEURALGIA [None]
  - BLOOD URINE PRESENT [None]
  - PROTEIN URINE PRESENT [None]
